FAERS Safety Report 8510594-2 (Version None)
Quarter: 2012Q3

REPORT INFORMATION
  Report Type: 
  Country: None (occurrence: None)
  Receive Date: 20120716
  Receipt Date: 20120703
  Transmission Date: 20120928
  Serious: Yes (Hospitalization)
  Sender: FDA-Public Use
  Company Number: DE-BIOGENIDEC-2012BI023874

PATIENT
  Age: 29 Year
  Sex: Female
  Weight: 72 kg

DRUGS (4)
  1. LYRICA [Concomitant]
     Indication: PAIN IN EXTREMITY
     Dates: start: 20070101
  2. LYRICA [Concomitant]
     Dates: start: 20070101
  3. AVONEX [Suspect]
     Indication: MULTIPLE SCLEROSIS
     Route: 030
     Dates: start: 20060101, end: 20090101
  4. GABAPENTIN [Concomitant]
     Indication: PAIN IN EXTREMITY
     Dates: start: 20050101, end: 20070101

REACTIONS (3)
  - VULVAL ABSCESS [None]
  - ANAL ABSCESS [None]
  - ABSCESS SWEAT GLAND [None]
